FAERS Safety Report 5477315-1 (Version None)
Quarter: 2007Q4

REPORT INFORMATION
  Report Type: 
  Country: None (occurrence: None)
  Receive Date: 20071004
  Receipt Date: 20070921
  Transmission Date: 20080405
  Serious: Yes (Other)
  Sender: FDA-Public Use
  Company Number: US-BRISTOL-MYERS SQUIBB COMPANY-12521209

PATIENT
  Age: 46 Year
  Sex: Male
  Weight: 84 kg

DRUGS (3)
  1. BETAPACE [Suspect]
     Indication: ATRIAL FIBRILLATION
     Dosage: BETAPACE 02/00: 480MG/D; BETAPACE AF~03/00: 200MG/D TITRATED TO 480MG/D; REDUCED TO 240MG
     Route: 048
     Dates: start: 20000201, end: 20040412
  2. COUMADIN [Suspect]
     Indication: ATRIAL FIBRILLATION
     Dosage: INTERRUPTED 31-JAN-2004 (1 WK PRIOR TO ABLATION)
     Route: 048
     Dates: start: 20000101
  3. LIPITOR [Suspect]
     Dates: end: 20030101

REACTIONS (2)
  - AMYOTROPHIC LATERAL SCLEROSIS [None]
  - THROMBOSIS [None]
